FAERS Safety Report 9398484 (Version 1)
Quarter: 2013Q3

REPORT INFORMATION
  Report Type: Spontaneous
  Country: US (occurrence: US)
  Receive Date: 20130712
  Receipt Date: 20130712
  Transmission Date: 20140515
  Serious: Yes (Other)
  Sender: FDA-Public Use
  Company Number: US-BRISTOL-MYERS SQUIBB COMPANY-19064583

PATIENT
  Sex: Female

DRUGS (1)
  1. ABILIFY [Suspect]

REACTIONS (5)
  - Loss of consciousness [Unknown]
  - Fall [Unknown]
  - Tremor [Unknown]
  - Muscle twitching [Unknown]
  - Blood glucose increased [Unknown]
